FAERS Safety Report 24645273 (Version 1)
Quarter: 2024Q4

REPORT INFORMATION
  Report Type: Spontaneous
  Country: US (occurrence: US)
  Receive Date: 20241121
  Receipt Date: 20241121
  Transmission Date: 20250115
  Serious: No
  Sender: SANOFI AVENTIS
  Company Number: US-SA-2024SA339156

PATIENT
  Age: 3 Year
  Sex: Male

DRUGS (1)
  1. DUPIXENT [Suspect]
     Active Substance: DUPILUMAB
     Indication: Eczema
     Dosage: 200.000MG Q4W
     Route: 058
     Dates: start: 202403

REACTIONS (4)
  - Rash [Unknown]
  - Therapeutic response shortened [Unknown]
  - Pruritus [Unknown]
  - Dry skin [Unknown]
